FAERS Safety Report 10171581 (Version 1)
Quarter: 2014Q2

REPORT INFORMATION
  Report Type: Spontaneous
  Country: CO (occurrence: CO)
  Receive Date: 20140514
  Receipt Date: 20140514
  Transmission Date: 20141212
  Serious: Yes (Hospitalization)
  Sender: FDA-Public Use
  Company Number: CO-PFIZER INC-2014130908

PATIENT
  Age: 9 Year
  Sex: Female

DRUGS (2)
  1. GENOTROPIN [Suspect]
     Indication: TURNER^S SYNDROME
     Dosage: 1.4 MG, 6X/WEEK (DOSE INTERSPERSED)
     Route: 058
     Dates: start: 2010
  2. GENOTROPIN [Suspect]
     Dosage: 1.6 MG, 6X/WEEK (DOSE INTERSPERSED)
     Route: 058
     Dates: start: 2010

REACTIONS (3)
  - Asphyxia [Not Recovered/Not Resolved]
  - Dermatitis [Not Recovered/Not Resolved]
  - Hypersensitivity [Not Recovered/Not Resolved]
